FAERS Safety Report 7044523-8 (Version None)
Quarter: 2010Q4

REPORT INFORMATION
  Report Type: 
  Country: None (occurrence: None)
  Receive Date: 20101014
  Receipt Date: 20101005
  Transmission Date: 20110411
  Serious: Yes (Hospitalization)
  Sender: FDA-Public Use
  Company Number: CA-JNJFOC-20100405835

PATIENT
  Sex: Female
  Weight: 75 kg

DRUGS (10)
  1. REMICADE [Suspect]
     Indication: RHEUMATOID ARTHRITIS
     Route: 042
  2. ADALAT CC [Concomitant]
     Route: 048
  3. PARIET [Concomitant]
     Route: 048
  4. AMITRIPTYLINE [Concomitant]
  5. AMITRIPTYLINE [Concomitant]
  6. ASPIRIN [Concomitant]
     Route: 048
  7. AZATHIOPRINE [Concomitant]
  8. AVAPRO [Concomitant]
  9. METOPROLOL SUCCINATE [Concomitant]
  10. METOPROLOL SUCCINATE [Concomitant]

REACTIONS (4)
  - CHEST PAIN [None]
  - PULMONARY OEDEMA [None]
  - RENAL DISORDER [None]
  - URINARY TRACT INFECTION [None]
